FAERS Safety Report 26064701 (Version 1)
Quarter: 2025Q4

REPORT INFORMATION
  Report Type: Spontaneous
  Country: US (occurrence: US)
  Receive Date: 20251119
  Receipt Date: 20251119
  Transmission Date: 20260117
  Serious: Yes (Other)
  Sender: ABBVIE
  Company Number: US-ABBVIE-6553882

PATIENT
  Sex: Female

DRUGS (2)
  1. LUMIGAN [Suspect]
     Active Substance: BIMATOPROST
     Indication: Glaucoma
     Dosage: ROA: OPHTHALMIC
     Route: 065
  2. LUMIGAN [Suspect]
     Active Substance: BIMATOPROST
     Indication: Intraocular pressure test

REACTIONS (3)
  - Anaemia [Not Recovered/Not Resolved]
  - Cataract [Unknown]
  - Adverse drug reaction [Unknown]

NARRATIVE: CASE EVENT DATE: 20250101
